FAERS Safety Report 4275495-7 (Version None)
Quarter: 2004Q1

REPORT INFORMATION
  Report Type: 
  Country: None (occurrence: None)
  Receive Date: 20040116
  Receipt Date: 20040108
  Transmission Date: 20041129
  Serious: Yes (Death, Hospitalization)
  Sender: FDA-Public Use
  Company Number: US063037

PATIENT
  Age: 56 Year
  Sex: Male

DRUGS (3)
  1. ENBREL [Suspect]
     Indication: RHEUMATOID ARTHRITIS
     Dosage: 25 MG, TWICE WEEKLY, SC
     Route: 058
     Dates: start: 20010601
  2. MOXIFLOXACIN [Concomitant]
  3. CIPROFLOXACIN HYDROCHLORIDE [Concomitant]

REACTIONS (8)
  - BIOPSY BONE MARROW ABNORMAL [None]
  - EOSINOPHIL COUNT INCREASED [None]
  - GASTROINTESTINAL HAEMORRHAGE [None]
  - JAUNDICE [None]
  - LIVER FUNCTION TEST ABNORMAL [None]
  - MARROW HYPERPLASIA [None]
  - PANCYTOPENIA [None]
  - PYREXIA [None]
